FAERS Safety Report 24836067 (Version 1)
Quarter: 2025Q1

REPORT INFORMATION
  Report Type: Spontaneous
  Country: US (occurrence: US)
  Receive Date: 20250113
  Receipt Date: 20250113
  Transmission Date: 20250409
  Serious: No
  Sender: GLAND PHARMA LTD
  Company Number: US-GLANDPHARMA-US-2025GLNSPO00026

PATIENT
  Sex: Male

DRUGS (2)
  1. DOXORUBICIN HYDROCHLORIDE [Suspect]
     Active Substance: DOXORUBICIN HYDROCHLORIDE
     Indication: Osteosarcoma
     Route: 065
     Dates: start: 2024
  2. METHOTREXATE [Suspect]
     Active Substance: METHOTREXATE
     Indication: Osteosarcoma
     Route: 065
     Dates: start: 2024

REACTIONS (2)
  - Melanoderma [Unknown]
  - Rash [Unknown]

NARRATIVE: CASE EVENT DATE: 20240101
